FAERS Safety Report 8805078 (Version 2)
Quarter: 2012Q4

REPORT INFORMATION
  Report Type: 
  Country: US (occurrence: US)
  Receive Date: 20120924
  Receipt Date: 20121213
  Transmission Date: 20130627
  Serious: No
  Sender: FDA-Public Use
  Company Number: US-ALLERGAN-1212022US

PATIENT
  Age: 67 Year
  Sex: Female

DRUGS (1)
  1. LUMIGAN� 0.01% [Suspect]
     Indication: ANGLE CLOSURE GLAUCOMA
     Dosage: 2 Gtt, qhs
     Route: 047
     Dates: start: 201208

REACTIONS (1)
  - Swelling face [Recovered/Resolved]
